FAERS Safety Report 19954209 (Version 1)
Quarter: 2021Q4

REPORT INFORMATION
  Report Type: Report from Study
  Country: DE (occurrence: DE)
  Receive Date: 20211013
  Receipt Date: 20211013
  Transmission Date: 20220303
  Serious: Yes (Other)
  Sender: FDA-Public Use
  Company Number: DE-TAKEDA-2021TUS061288

PATIENT
  Age: 12 Year
  Sex: Male
  Weight: 40 kg

DRUGS (3)
  1. ADVATE [Suspect]
     Active Substance: ANTIHEMOPHILIC FACTOR, HUMAN RECOMBINANT
     Indication: Haemophilia
     Dosage: 2000 INTERNATIONAL UNIT
     Route: 042
     Dates: start: 20060324
  2. ADVATE [Suspect]
     Active Substance: ANTIHEMOPHILIC FACTOR, HUMAN RECOMBINANT
     Indication: Haemophilia
     Dosage: 2000 INTERNATIONAL UNIT
     Route: 042
     Dates: start: 20060324
  3. ADVATE [Suspect]
     Active Substance: ANTIHEMOPHILIC FACTOR, HUMAN RECOMBINANT
     Indication: Haemophilia
     Dosage: 2000 INTERNATIONAL UNIT
     Route: 042
     Dates: start: 20060324

REACTIONS (4)
  - Epistaxis [Recovered/Resolved]
  - Ankle deformity [Recovered/Resolved]
  - Contusion [Recovered/Resolved]
  - Fall [Recovered/Resolved]

NARRATIVE: CASE EVENT DATE: 20131202
